FAERS Safety Report 12454033 (Version 1)
Quarter: 2016Q2

REPORT INFORMATION
  Report Type: Report from Study
  Country: FR (occurrence: FR)
  Receive Date: 20160610
  Receipt Date: 20160610
  Transmission Date: 20160815
  Serious: Yes (Death, Hospitalization)
  Sender: FDA-Public Use
  Company Number: FR-ROCHE-1771490

PATIENT
  Sex: Female

DRUGS (4)
  1. RITUXIMAB [Suspect]
     Active Substance: RITUXIMAB
     Indication: RHEUMATOID ARTHRITIS
     Dosage: DAY 1
     Route: 042
     Dates: start: 20090310
  2. RITUXIMAB [Suspect]
     Active Substance: RITUXIMAB
     Dosage: DAY 15
     Route: 042
     Dates: start: 20090323
  3. CORTANCYL [Concomitant]
     Active Substance: PREDNISONE
     Route: 065
  4. LEFLUNOMIDE. [Concomitant]
     Active Substance: LEFLUNOMIDE
     Route: 065

REACTIONS (5)
  - Dyspnoea [Recovered/Resolved]
  - Bronchitis [Unknown]
  - Death [Fatal]
  - Chest pain [Recovered/Resolved]
  - Abdominal pain upper [Recovered/Resolved]

NARRATIVE: CASE EVENT DATE: 20090328
